FAERS Safety Report 7249312-7 (Version None)
Quarter: 2011Q1

REPORT INFORMATION
  Report Type: 
  Country: None (occurrence: None)
  Receive Date: 20110128
  Receipt Date: 20101129
  Transmission Date: 20110831
  Serious: Yes (Hospitalization)
  Sender: FDA-Public Use
  Company Number: US-BAYER-201021532NA

PATIENT
  Sex: Female
  Weight: 78.636 kg

DRUGS (5)
  1. ADIPEX-P [Concomitant]
     Indication: WEIGHT DECREASED
     Dosage: 30 MG (DAILY DOSE), OM, ORAL
     Route: 048
     Dates: end: 20090601
  2. ADIPEX-P [Concomitant]
     Dosage: 37.5 MG (DAILY DOSE), OM, ORAL
     Route: 048
     Dates: start: 20090601
  3. ADIPEX-P [Concomitant]
     Dosage: 37.5 MG (DAILY DOSE), OM, ORAL
     Route: 048
     Dates: start: 20090601
  4. YAZ [Suspect]
     Route: 048
     Dates: start: 20061101, end: 20090915
  5. TORADOL [Concomitant]
     Indication: ABDOMINAL PAIN
     Dates: start: 20090701

REACTIONS (5)
  - CHOLELITHIASIS [None]
  - CHOLECYSTITIS CHRONIC [None]
  - NAUSEA [None]
  - FLANK PAIN [None]
  - ABDOMINAL PAIN [None]
